FAERS Safety Report 5914820-5 (Version None)
Quarter: 2008Q4

REPORT INFORMATION
  Report Type: 
  Country: None (occurrence: None)
  Receive Date: 20081010
  Receipt Date: 20081001
  Transmission Date: 20090506
  Serious: Yes (Life-Threatening)
  Sender: FDA-Public Use
  Company Number: GB-ELI_LILLY_AND_COMPANY-GB200810000685

PATIENT
  Age: 85 Year
  Sex: Male
  Weight: 67 kg

DRUGS (9)
  1. XIGRIS [Suspect]
     Indication: SEPSIS
     Dosage: 1.6 MG, EVERY HOUR
     Route: 042
     Dates: start: 20080923, end: 20080923
  2. CEFTRIAXONE [Concomitant]
     Dosage: UNK, UNKNOWN
     Route: 065
  3. CLARITHROMYCIN [Concomitant]
     Dosage: UNK, UNKNOWN
     Route: 065
  4. ENOXAPARIN SODIUM [Concomitant]
     Dosage: UNK, UNKNOWN
     Route: 065
  5. HYDROCORTISONE [Concomitant]
     Dosage: UNK, UNKNOWN
     Route: 065
  6. SODIUM CHLORIDE [Concomitant]
     Dosage: UNK, UNKNOWN
     Route: 065
  7. ACETAMINOPHEN [Concomitant]
     Dosage: UNK, UNKNOWN
     Route: 065
  8. RANITIDINE [Concomitant]
     Dosage: UNK, UNKNOWN
     Route: 065
  9. SALBUTAMOL [Concomitant]
     Dosage: UNK, UNKNOWN
     Route: 065

REACTIONS (1)
  - ANAPHYLACTIC REACTION [None]
